FAERS Safety Report 10082939 (Version 2)
Quarter: 2014Q2

REPORT INFORMATION
  Report Type: Report from Study
  Country: DE (occurrence: DE)
  Receive Date: 20140417
  Receipt Date: 20140425
  Transmission Date: 20141212
  Serious: Yes (Hospitalization)
  Sender: FDA-Public Use
  Company Number: DE-ROCHE-1384441

PATIENT
  Age: 43 Year
  Sex: Female
  Weight: 61.5 kg

DRUGS (5)
  1. BEVACIZUMAB [Suspect]
     Indication: OVARIAN CANCER
     Dosage: LATEST DOSE PRIOR TO DIAPRAGMATIC HERNIA ON13/MAR/2014
     Route: 042
     Dates: start: 20130704
  2. CARBOPLATIN [Suspect]
     Indication: OVARIAN CANCER
     Dosage: LATEST DOSE PRIOR TO DIAPRAGMATIC HERNIA ON 05/SEP/2013 AND AREA UNDER CURVE 5, 800MG ABSOLUTE
     Route: 042
     Dates: start: 20130524
  3. PACLITAXEL [Suspect]
     Indication: OVARIAN CANCER
     Dosage: LATEST DOSE PRIOR TO DIAPRAGMATIC HERNIA ON 05/SEP/2013 AND 175 MG/M2 OR 300 MG ABSOLUTE
     Route: 042
     Dates: start: 20130524
  4. HEPARIN [Concomitant]
     Indication: PROPHYLAXIS
     Dosage: UNIT DOSE: 5000 IE AND DAILY DOSE: 10000 IE
     Route: 058
     Dates: start: 20140410
  5. HEPARIN [Concomitant]
     Indication: THROMBOSIS

REACTIONS (1)
  - Diaphragmatic hernia [Recovered/Resolved]
